FAERS Safety Report 10763222 (Version 1)
Quarter: 2015Q1

REPORT INFORMATION
  Report Type: Other
  Country: US (occurrence: US)
  Receive Date: 20150204
  Receipt Date: 20150204
  Transmission Date: 20150721
  Serious: No
  Sender: FDA-Public Use
  Company Number: US-ACORDA-ACO_102218_2014

PATIENT
  Sex: Female

DRUGS (1)
  1. AMPYRA [Suspect]
     Active Substance: DALFAMPRIDINE
     Indication: EXERCISE TOLERANCE DECREASED
     Dosage: 10 MG, BID
     Route: 065
     Dates: end: 20140228

REACTIONS (4)
  - Drug ineffective for unapproved indication [Unknown]
  - Diarrhoea [Recovering/Resolving]
  - Balance disorder [Recovered/Resolved]
  - Disturbance in attention [Recovered/Resolved]
